FAERS Safety Report 9099494 (Version 2)
Quarter: 2013Q1

REPORT INFORMATION
  Report Type: Spontaneous
  Country: US (occurrence: US)
  Receive Date: 20130214
  Receipt Date: 20130325
  Transmission Date: 20140127
  Serious: Yes (Other)
  Sender: FDA-Public Use
  Company Number: US-BRISTOL-MYERS SQUIBB COMPANY-17355256

PATIENT
  Age: 46 Year
  Sex: Female

DRUGS (3)
  1. ORENCIA [Suspect]
     Indication: RHEUMATOID ARTHRITIS
     Dosage: NO OF INF:3?LAST INF ON 16JAN13?JAN2008-MAY2010?21NOV2012-ONG
     Route: 042
     Dates: start: 200801
  2. METHOTREXATE [Concomitant]
     Dates: start: 201005
  3. PLAQUENIL [Concomitant]
     Dates: start: 200803, end: 200904

REACTIONS (2)
  - Surgery [Unknown]
  - Sinusitis [Not Recovered/Not Resolved]
